FAERS Safety Report 5001836-9 (Version None)
Quarter: 2006Q2

REPORT INFORMATION
  Report Type: 
  Country: None (occurrence: None)
  Receive Date: 20060515
  Receipt Date: 20051208
  Transmission Date: 20061013
  Serious: Yes (Hospitalization)
  Sender: FDA-Public Use
  Company Number: FR-GLAXOSMITHKLINE-B0402972A

PATIENT
  Age: 26 Year
  Sex: Male
  Weight: 57 kg

DRUGS (3)
  1. LAMICTAL [Suspect]
     Indication: EPILEPSY
     Dosage: 1TAB TWICE PER DAY
     Route: 048
     Dates: start: 20050923
  2. DEPAKENE [Concomitant]
     Indication: EPILEPSY
     Dosage: 2TAB TWICE PER DAY
     Route: 048
  3. NEURONTIN [Concomitant]
     Route: 048
     Dates: end: 20051012

REACTIONS (8)
  - CHILLS [None]
  - LEUKOPENIA [None]
  - LYMPHADENOPATHY [None]
  - MALAISE [None]
  - RASH [None]
  - RASH MACULO-PAPULAR [None]
  - THROMBOCYTOPENIA [None]
  - TOXIC SKIN ERUPTION [None]
